FAERS Safety Report 9921064 (Version 1)
Quarter: 2014Q1

REPORT INFORMATION
  Report Type: Spontaneous
  Country: US (occurrence: US)
  Receive Date: 20140225
  Receipt Date: 20140225
  Transmission Date: 20141002
  Serious: Yes (Death)
  Sender: FDA-Public Use
  Company Number: US-ROCHE-1355164

PATIENT
  Age: 69 Year
  Sex: Male
  Weight: 83 kg

DRUGS (9)
  1. VALIUM [Suspect]
     Indication: INSOMNIA
     Route: 065
     Dates: start: 20051101
  2. NEURONTIN (UNITED STATES) [Concomitant]
     Route: 065
     Dates: start: 20020901
  3. RILUTEK [Concomitant]
     Indication: AMYOTROPHIC LATERAL SCLEROSIS
     Route: 065
     Dates: start: 20041101
  4. SENOKOT [Concomitant]
     Indication: CONSTIPATION
     Route: 065
     Dates: start: 20051101
  5. COLACE [Concomitant]
     Indication: CONSTIPATION
     Route: 065
     Dates: start: 20051101
  6. VICODIN [Concomitant]
     Indication: PAIN
     Route: 065
     Dates: start: 20051101
  7. TEMAZEPAM [Concomitant]
     Indication: INSOMNIA
     Route: 065
     Dates: start: 20051101
  8. MUCINEX [Concomitant]
     Route: 065
     Dates: start: 20051101
  9. METHYLPHENIDATE [Concomitant]
     Indication: FATIGUE
     Route: 065

REACTIONS (1)
  - Death [Fatal]
